FAERS Safety Report 5237035-5 (Version None)
Quarter: 2007Q1

REPORT INFORMATION
  Report Type: 
  Country: None (occurrence: None)
  Receive Date: 20070209
  Receipt Date: 20070124
  Transmission Date: 20070707
  Serious: Yes (Other)
  Sender: FDA-Public Use
  Company Number: DSA_29304_2007

PATIENT

DRUGS (1)
  1. ENALAPRIL MALEATE [Suspect]
     Dosage: DF

REACTIONS (1)
  - ANAEMIA [None]
